FAERS Safety Report 10923865 (Version 1)
Quarter: 2015Q1

REPORT INFORMATION
  Report Type: Spontaneous
  Country: US (occurrence: None)
  Receive Date: 20150129
  Receipt Date: 20150129
  Transmission Date: 20150721
  Serious: Yes (Hospitalization)
  Sender: FDA-Public Use
  Company Number: 2014PAC00053

PATIENT
  Age: 66 Year
  Sex: Female
  Weight: 160 kg

DRUGS (4)
  1. METOPROLOL SUCCINATE ER [Concomitant]
     Active Substance: METOPROLOL SUCCINATE
  2. BENAZEPRIL HYDROCHLORIDE AND HYDROCHLOROTHIAZIDE [Concomitant]
     Active Substance: BENAZEPRIL HYDROCHLORIDE\HYDROCHLOROTHIAZIDE
     Dates: start: 20141002
  3. TIZANIDINE (TIZANIDINE) [Concomitant]
     Active Substance: TIZANIDINE
  4. DICLOFENAC SODIUM DELAYED-RELEASE [Suspect]
     Active Substance: DICLOFENAC SODIUM
     Indication: INFLAMMATION
     Dates: start: 20140923, end: 20141007

REACTIONS (3)
  - Blood pressure systolic increased [None]
  - Blood pressure fluctuation [None]
  - Diverticulitis [None]

NARRATIVE: CASE EVENT DATE: 20140930
